FAERS Safety Report 6904260-4 (Version None)
Quarter: 2010Q3

REPORT INFORMATION
  Report Type: 
  Country: None (occurrence: None)
  Receive Date: 20100804
  Receipt Date: 20090413
  Transmission Date: 20110219
  Serious: Yes (Other)
  Sender: FDA-Public Use
  Company Number: US-PFIZER INC-2009171559

PATIENT

DRUGS (3)
  1. LYRICA [Suspect]
     Dosage: 150 MG, 2X/DAY
  2. ADVAIR DISKUS 100/50 [Suspect]
  3. ALL OTHER THERAPEUTIC PRODUCTS [Concomitant]

REACTIONS (1)
  - WEIGHT INCREASED [None]
